FAERS Safety Report 5232747-1 (Version None)
Quarter: 2007Q1

REPORT INFORMATION
  Report Type: 
  Country: None (occurrence: None)
  Receive Date: 20070206
  Receipt Date: 20070206
  Transmission Date: 20070707
  Serious: Yes (Other)
  Sender: FDA-Public Use
  Company Number: None

PATIENT
  Sex: Female
  Weight: 77.1115 kg

DRUGS (1)
  1. ORTHO EVRA [Suspect]
     Indication: ORAL CONTRACEPTION
     Dosage: TRANSDERMAL PATCH  ONE EACH WEEK   TRANSDERMAL
     Route: 062
     Dates: start: 20060801, end: 20061201

REACTIONS (3)
  - ARTHRITIS [None]
  - EYE INFLAMMATION [None]
  - EYE PAIN [None]
